FAERS Safety Report 6974842-2 (Version None)
Quarter: 2010Q3

REPORT INFORMATION
  Report Type: 
  Country: None (occurrence: None)
  Receive Date: 20100909
  Receipt Date: 20090203
  Transmission Date: 20110219
  Serious: No
  Sender: FDA-Public Use
  Company Number: US-WYE-H07281808

PATIENT
  Sex: Male
  Weight: 114.41 kg

DRUGS (8)
  1. PRISTIQ [Suspect]
     Indication: MAJOR DEPRESSION
     Route: 048
     Dates: start: 20081115, end: 20081208
  2. PROVIGIL [Concomitant]
  3. STRATTERA [Concomitant]
  4. SYMLIN [Concomitant]
  5. ALPRAZOLAM [Concomitant]
  6. ABILIFY [Concomitant]
  7. LIPITOR [Concomitant]
  8. NOVOLOG [Concomitant]

REACTIONS (2)
  - DYSARTHRIA [None]
  - TREMOR [None]
